FAERS Safety Report 5084103-7 (Version None)
Quarter: 2006Q3

REPORT INFORMATION
  Report Type: 
  Country: None (occurrence: None)
  Receive Date: 20060816
  Receipt Date: 20060803
  Transmission Date: 20061208
  Serious: Yes (Other)
  Sender: FDA-Public Use
  Company Number: SPV1-2006-00344

PATIENT
  Age: 6 Year
  Sex: Male
  Weight: 24.5 kg

DRUGS (3)
  1. DAYTRANA (METHYLPHENIDATE)PATCH [Suspect]
     Indication: ATTENTION DEFICIT/HYPERACTIVITY DISORDER
     Dosage: 10 MG, TRANSDERMAL
     Route: 062
     Dates: start: 20060730
  2. ADDERALL (AMPHETAMINE ASPARTATE, AMPHETAMINE SULFATE, DEXTROAMPHETAMIN [Concomitant]
  3. FOCALIN [Concomitant]

REACTIONS (7)
  - ABNORMAL BEHAVIOUR [None]
  - AGGRESSION [None]
  - AGITATION [None]
  - CRYING [None]
  - DRUG WITHDRAWAL SYNDROME [None]
  - PHYSICAL ASSAULT [None]
  - REBOUND EFFECT [None]
